FAERS Safety Report 22245155 (Version 1)
Quarter: 2023Q2

REPORT INFORMATION
  Report Type: Spontaneous
  Country: FR (occurrence: None)
  Receive Date: 20230424
  Receipt Date: 20230424
  Transmission Date: 20230721
  Serious: Yes (Hospitalization)
  Sender: FDA-Public Use
  Company Number: 2023A090404

PATIENT
  Age: 25 Year
  Sex: Female

DRUGS (7)
  1. QUETIAPINE [Suspect]
     Active Substance: QUETIAPINE
     Dosage: 500.0MG ONCE/SINGLE ADMINISTRATION
     Route: 048
  2. PRAZEPAM [Suspect]
     Active Substance: PRAZEPAM
     Dosage: 200.0MG ONCE/SINGLE ADMINISTRATION
     Route: 048
  3. COCAINE [Suspect]
     Active Substance: COCAINE
     Dosage: DIFFICULT TO QUANTIFY
     Dates: start: 2015
  4. TROPATEPINE HYDROCHLORIDE [Suspect]
     Active Substance: TROPATEPINE HYDROCHLORIDE
     Dosage: 260.0MG ONCE/SINGLE ADMINISTRATION
     Route: 048
  5. RISPERIDONE [Suspect]
     Active Substance: RISPERIDONE
     Dosage: 20.0MG ONCE/SINGLE ADMINISTRATION
     Route: 048
  6. CANNABIS SATIVA SUBSP. INDICA TOP [Concomitant]
     Active Substance: CANNABIS SATIVA SUBSP. INDICA TOP
     Dosage: NOT PRECISE
     Route: 055
     Dates: start: 2010
  7. KETAMINE [Concomitant]
     Active Substance: KETAMINE
     Dosage: NOT PRECISE
     Dates: start: 2015

REACTIONS (3)
  - Loss of consciousness [Recovered/Resolved]
  - Intentional product misuse [Not Recovered/Not Resolved]
  - Drug abuse [Not Recovered/Not Resolved]

NARRATIVE: CASE EVENT DATE: 20220921
